FAERS Safety Report 9051547 (Version 3)
Quarter: 2014Q1

REPORT INFORMATION
  Report Type: Spontaneous
  Country: US (occurrence: US)
  Receive Date: 20130207
  Receipt Date: 20140313
  Transmission Date: 20141002
  Serious: Yes (Disabling)
  Sender: FDA-Public Use
  Company Number: US-009507513-1302USA001552

PATIENT
  Sex: Male

DRUGS (4)
  1. PROPECIA [Suspect]
     Indication: ALOPECIA
     Dosage: 1 MG, UNK
     Route: 048
     Dates: start: 20020927, end: 20070823
  2. ERYTHROMYCIN [Concomitant]
     Indication: SKIN IRRITATION
     Dosage: 250 MG, BID
     Dates: start: 2000, end: 2005
  3. CLINDAMYCIN [Concomitant]
     Indication: SKIN IRRITATION
     Dosage: 5 %, BID
     Route: 061
     Dates: start: 2000, end: 20060715
  4. CLINDAMYCIN [Concomitant]
     Indication: ACNE

REACTIONS (6)
  - Joint injury [Not Recovered/Not Resolved]
  - Cognitive disorder [Not Recovered/Not Resolved]
  - Back disorder [Unknown]
  - Adverse event [Unknown]
  - Sexual dysfunction [Not Recovered/Not Resolved]
  - Erectile dysfunction [Unknown]
